FAERS Safety Report 16365919 (Version 1)
Quarter: 2019Q2

REPORT INFORMATION
  Report Type: Spontaneous
  Country: CA (occurrence: CA)
  Receive Date: 20190529
  Receipt Date: 20190529
  Transmission Date: 20190711
  Serious: Yes (Hospitalization, Other)
  Sender: FDA-Public Use
  Company Number: CA-PFIZER INC-2019225661

PATIENT
  Age: 33 Year
  Sex: Female

DRUGS (7)
  1. DEPO-PROVERA [Suspect]
     Active Substance: MEDROXYPROGESTERONE ACETATE
     Dosage: UNK
     Dates: start: 20190314
  2. JINARC [Suspect]
     Active Substance: TOLVAPTAN
     Indication: CONGENITAL CYSTIC KIDNEY DISEASE
  3. DEPO-PROVERA [Suspect]
     Active Substance: MEDROXYPROGESTERONE ACETATE
     Dosage: UNK
  4. NABILONE [Concomitant]
     Active Substance: NABILONE
     Indication: NAUSEA
     Dosage: UNK
  5. NABILONE [Concomitant]
     Active Substance: NABILONE
     Indication: PAIN MANAGEMENT
  6. JINARC [Suspect]
     Active Substance: TOLVAPTAN
     Indication: CONGENITAL CYSTIC KIDNEY DISEASE
     Dosage: 60 MG, DAILY [45 MG IN MORNING, 15 MG IN EVENING]
     Route: 048
     Dates: start: 20160420
  7. COVERSYL [Concomitant]
     Active Substance: PERINDOPRIL
     Indication: BLOOD PRESSURE ABNORMAL
     Dosage: 4 MG, UNK

REACTIONS (25)
  - Pulmonary embolism [Not Recovered/Not Resolved]
  - Renal pain [Unknown]
  - Blood thyroid stimulating hormone increased [Unknown]
  - Food craving [Unknown]
  - Fatigue [Recovering/Resolving]
  - Chest pain [Unknown]
  - Serum ferritin decreased [Unknown]
  - Emotional disorder [Unknown]
  - White blood cell count increased [Unknown]
  - Nocturia [Not Recovered/Not Resolved]
  - Thrombosis [Unknown]
  - Lower respiratory tract infection [Unknown]
  - Neutrophil count increased [Not Recovered/Not Resolved]
  - Sleep disorder [Unknown]
  - Nasopharyngitis [Unknown]
  - Impaired quality of life [Unknown]
  - Thirst [Unknown]
  - Malaise [Unknown]
  - Urine albumin/creatinine ratio increased [Unknown]
  - Pollakiuria [Recovering/Resolving]
  - Weight increased [Recovering/Resolving]
  - Somnolence [Not Recovered/Not Resolved]
  - Nausea [Unknown]
  - Polydipsia [Unknown]
  - Dyspnoea [Unknown]

NARRATIVE: CASE EVENT DATE: 20160516
